FAERS Safety Report 20840088 (Version 1)
Quarter: 2022Q2

REPORT INFORMATION
  Report Type: Report from Study
  Country: KR (occurrence: KR)
  Receive Date: 20220517
  Receipt Date: 20220517
  Transmission Date: 20220721
  Serious: Yes (Death, Hospitalization, Other)
  Sender: FDA-Public Use
  Company Number: KR-MILLENNIUM-2014MPI000889

PATIENT
  Age: 63 Year
  Sex: Male

DRUGS (14)
  1. IXAZOMIB [Suspect]
     Active Substance: IXAZOMIB
     Indication: Plasma cell myeloma
     Dosage: 4 MILLIGRAM
     Route: 048
     Dates: start: 20131204
  2. IXAZOMIB [Suspect]
     Active Substance: IXAZOMIB
     Dosage: UNK
     Route: 048
     Dates: start: 20140527, end: 20140603
  3. DEXAMETHASONE [Suspect]
     Active Substance: DEXAMETHASONE
     Indication: Plasma cell myeloma
     Dosage: 40 MILLIGRAM
     Route: 048
     Dates: start: 20131204, end: 20140423
  4. DEXAMETHASONE [Suspect]
     Active Substance: DEXAMETHASONE
     Dosage: UNK
     Route: 048
     Dates: start: 20140527, end: 20140603
  5. LENALIDOMIDE [Suspect]
     Active Substance: LENALIDOMIDE
     Indication: Plasma cell myeloma
     Dosage: 25 MILLIGRAM, QD
     Route: 048
     Dates: start: 20131204
  6. LENALIDOMIDE [Suspect]
     Active Substance: LENALIDOMIDE
     Dosage: UNK
     Route: 048
     Dates: start: 20140527, end: 20140603
  7. SULFAMETHOXAZOLE\TRIMETHOPRIM [Concomitant]
     Active Substance: SULFAMETHOXAZOLE\TRIMETHOPRIM
     Indication: Prophylaxis
     Dosage: 2 UNK, D1-14 PER CYCLE
     Route: 048
     Dates: start: 20131204
  8. VACROVIR                           /00587301/ [Concomitant]
     Indication: Prophylaxis
     Dosage: 750 MG, D1-14 PER CYCLE
     Route: 048
     Dates: start: 20131204
  9. FLUCONAZOLE [Concomitant]
     Active Substance: FLUCONAZOLE
     Indication: Prophylaxis
     Dosage: 200 MG, D1-14 PER CYCLE
     Route: 048
     Dates: start: 20131204
  10. CIMET                              /00397401/ [Concomitant]
     Indication: Prophylaxis
     Dosage: 2 TA
     Route: 048
     Dates: start: 20131204, end: 20140325
  11. SUCRALFATE [Concomitant]
     Active Substance: SUCRALFATE
     Indication: Prophylaxis
     Dosage: 3 PA, DAY 1,8,15,22
     Route: 048
     Dates: start: 20131204, end: 20140325
  12. ASPIRIN [Concomitant]
     Active Substance: ASPIRIN
     Indication: Prophylaxis
     Dosage: 2 TA, D 1-14 PER CYCLE
     Route: 048
     Dates: start: 20131204
  13. ADCAL                              /00056901/ [Concomitant]
     Indication: Hypocalcaemia
     Dosage: 2 TA
     Route: 048
     Dates: start: 20140326
  14. Cura [Concomitant]
     Indication: Prophylaxis
     Dosage: 2 TA, DAY 1-14
     Route: 048
     Dates: start: 20140326

REACTIONS (7)
  - Pneumonia aspiration [Fatal]
  - Pain in extremity [Recovered/Resolved]
  - Abdominal pain [Recovered/Resolved]
  - Pneumonia [Recovered/Resolved]
  - Hyponatraemia [Not Recovered/Not Resolved]
  - Fatigue [Recovered/Resolved]
  - Platelet count decreased [Recovered/Resolved]

NARRATIVE: CASE EVENT DATE: 20140328
